FAERS Safety Report 24820381 (Version 1)
Quarter: 2025Q1

REPORT INFORMATION
  Report Type: Spontaneous
  Country: FR (occurrence: FR)
  Receive Date: 20250108
  Receipt Date: 20250108
  Transmission Date: 20250409
  Serious: Yes (Hospitalization)
  Sender: MYLAN
  Company Number: None

PATIENT
  Age: 72 Year
  Sex: Male
  Weight: 75 kg

DRUGS (8)
  1. PREDNISONE [Suspect]
     Active Substance: PREDNISONE
     Indication: Arthralgia
     Dosage: 10 MILLIGRAM, QD
     Route: 048
     Dates: start: 202405, end: 2024
  2. TESTOSTERONE [Suspect]
     Active Substance: TESTOSTERONE
     Indication: Andropause
     Dosage: 1 DOSAGE FORM, MONTHLY
     Route: 030
     Dates: start: 20240901
  3. TESTOSTERONE [Suspect]
     Active Substance: TESTOSTERONE
     Dosage: 1 DOSAGE FORM, MONTHLY
     Route: 030
     Dates: start: 20241001
  4. TESTOSTERONE [Suspect]
     Active Substance: TESTOSTERONE
     Dosage: 1 DOSAGE FORM, MONTHLY
     Route: 030
     Dates: start: 20241101
  5. OXAZEPAM [Concomitant]
     Active Substance: OXAZEPAM
     Route: 065
  6. PAROXETINE HYDROCHLORIDE [Concomitant]
     Active Substance: PAROXETINE HYDROCHLORIDE
     Route: 065
  7. METHOTREXATE [Concomitant]
     Active Substance: METHOTREXATE
     Route: 065
  8. FOLIC ACID [Concomitant]
     Active Substance: FOLIC ACID
     Route: 065

REACTIONS (1)
  - Thymus disorder [Recovered/Resolved]

NARRATIVE: CASE EVENT DATE: 20241001
